FAERS Safety Report 23575589 (Version 3)
Quarter: 2024Q1

REPORT INFORMATION
  Report Type: Report from Study
  Country: AU (occurrence: None)
  Receive Date: 20240228
  Receipt Date: 20240322
  Transmission Date: 20240410
  Serious: Yes (Other)
  Sender: FDA-Public Use
  Company Number: 2024A029799

PATIENT
  Age: 23224 Day
  Sex: Female

DRUGS (2)
  1. FASENRA [Suspect]
     Active Substance: BENRALIZUMAB
     Indication: Asthma
     Route: 058
     Dates: start: 202210
  2. SYMBICORT [Concomitant]
     Active Substance: BUDESONIDE\FORMOTEROL FUMARATE DIHYDRATE
     Dosage: 200/6 1 PUFF BD
     Route: 055

REACTIONS (3)
  - Joint injury [Not Recovered/Not Resolved]
  - Rash [Recovering/Resolving]
  - Scar [Recovering/Resolving]

NARRATIVE: CASE EVENT DATE: 20231201
